FAERS Safety Report 20877260 (Version 1)
Quarter: 2022Q2

REPORT INFORMATION
  Report Type: Spontaneous
  Country: CA (occurrence: None)
  Receive Date: 20220526
  Receipt Date: 20220526
  Transmission Date: 20220721
  Serious: Yes (Hospitalization)
  Sender: FDA-Public Use
  Company Number: CA-ROCHE-3102092

PATIENT
  Age: 37 Year
  Sex: Female

DRUGS (27)
  1. XOLAIR [Suspect]
     Active Substance: OMALIZUMAB
     Indication: Urticaria
     Route: 058
  2. XOLAIR [Suspect]
     Active Substance: OMALIZUMAB
     Indication: Angioedema
     Route: 058
  3. XOLAIR [Suspect]
     Active Substance: OMALIZUMAB
     Indication: Anaphylactic reaction
     Route: 058
  4. XOLAIR [Suspect]
     Active Substance: OMALIZUMAB
     Route: 058
  5. XOLAIR [Suspect]
     Active Substance: OMALIZUMAB
     Route: 058
  6. XOLAIR [Suspect]
     Active Substance: OMALIZUMAB
     Dosage: DRUG DOSE FIRST ADMINISTERED IS NOT PROVIDED
     Route: 058
  7. XOLAIR [Suspect]
     Active Substance: OMALIZUMAB
     Route: 058
  8. XOLAIR [Suspect]
     Active Substance: OMALIZUMAB
     Route: 058
  9. CLONAZEPAM [Suspect]
     Active Substance: CLONAZEPAM
     Indication: Product used for unknown indication
     Route: 065
  10. NASONEX [Concomitant]
     Active Substance: MOMETASONE FUROATE
  11. ZANTAC [Concomitant]
     Active Substance: RANITIDINE HYDROCHLORIDE
  12. FAMOTIDINE [Concomitant]
     Active Substance: FAMOTIDINE
  13. CROMOLYN [Concomitant]
     Active Substance: CROMOLYN
  14. FLUCONAZOLE [Concomitant]
     Active Substance: FLUCONAZOLE
  15. ALEVE [Concomitant]
     Active Substance: NAPROXEN SODIUM
  16. ATIVAN [Concomitant]
     Active Substance: LORAZEPAM
  17. CLARITIN [Concomitant]
     Active Substance: LORATADINE
  18. CROMOLYN SODIUM [Concomitant]
     Active Substance: CROMOLYN SODIUM
  19. GABAPENTIN [Concomitant]
     Active Substance: GABAPENTIN
  20. EPIPEN [Concomitant]
     Active Substance: EPINEPHRINE
  21. RUPATADINE [Concomitant]
     Active Substance: RUPATADINE
  22. VENTOLIN [Concomitant]
     Active Substance: ALBUTEROL SULFATE
  23. BILASTINE [Concomitant]
     Active Substance: BILASTINE
     Route: 048
  24. ONDANSETRON [Concomitant]
     Active Substance: ONDANSETRON
  25. ALLEGRA [Concomitant]
     Active Substance: FEXOFENADINE HYDROCHLORIDE
  26. BENADRYL [Concomitant]
     Active Substance: DIPHENHYDRAMINE HYDROCHLORIDE
  27. MEDROL [Concomitant]
     Active Substance: METHYLPREDNISOLONE

REACTIONS (21)
  - Migraine [Unknown]
  - Confusional state [Unknown]
  - Nasal disorder [Unknown]
  - Heart rate abnormal [Unknown]
  - Nerve compression [Unknown]
  - Fatigue [Unknown]
  - Dizziness [Unknown]
  - Nausea [Unknown]
  - Neuralgia [Unknown]
  - Myalgia [Unknown]
  - Cough [Unknown]
  - Insomnia [Unknown]
  - Illness [Unknown]
  - Diarrhoea [Unknown]
  - Headache [Unknown]
  - Fall [Unknown]
  - Anaphylactic reaction [Unknown]
  - Pyrexia [Unknown]
  - Muscle spasms [Unknown]
  - Arthralgia [Unknown]
  - Stress [Unknown]
